FAERS Safety Report 12557451 (Version 1)
Quarter: 2016Q3

REPORT INFORMATION
  Report Type: Spontaneous
  Country: US (occurrence: US)
  Receive Date: 20160714
  Receipt Date: 20160714
  Transmission Date: 20161109
  Serious: No
  Sender: FDA-Public Use
  Company Number: US-BEH-2016071105

PATIENT
  Sex: Female
  Weight: 74.83 kg

DRUGS (19)
  1. ZEMAIRA [Suspect]
     Active Substance: .ALPHA.1-PROTEINASE INHIBITOR HUMAN
     Indication: ALPHA-1 ANTI-TRYPSIN DEFICIENCY
     Dosage: 60 MG/KG, QW
     Route: 042
  2. LMX                                /00033401/ [Concomitant]
  3. DIPHENHYDRAMINE. [Concomitant]
     Active Substance: DIPHENHYDRAMINE
  4. SODIUM CHLORIDE. [Concomitant]
     Active Substance: SODIUM CHLORIDE
  5. IBUPROFEN. [Concomitant]
     Active Substance: IBUPROFEN
  6. ALDACTONE [Concomitant]
     Active Substance: SPIRONOLACTONE
  7. ACETAZOLAMIDE. [Concomitant]
     Active Substance: ACETAZOLAMIDE
  8. XANAX [Concomitant]
     Active Substance: ALPRAZOLAM
  9. LAMICTAL [Concomitant]
     Active Substance: LAMOTRIGINE
  10. SIMVASTATIN. [Concomitant]
     Active Substance: SIMVASTATIN
  11. OXYGEN. [Concomitant]
     Active Substance: OXYGEN
  12. SPIRIVA [Concomitant]
     Active Substance: TIOTROPIUM BROMIDE MONOHYDRATE
  13. PHENERGAN [Concomitant]
     Active Substance: PROMETHAZINE HYDROCHLORIDE
  14. LEVAQUIN [Concomitant]
     Active Substance: LEVOFLOXACIN
  15. LASIX [Concomitant]
     Active Substance: FUROSEMIDE
  16. LEXAPRO [Concomitant]
     Active Substance: ESCITALOPRAM OXALATE
  17. ALBUTEROL                          /00139501/ [Concomitant]
     Active Substance: ALBUTEROL
  18. EPIPEN [Concomitant]
     Active Substance: EPINEPHRINE
  19. ADVAIR HFA [Concomitant]
     Active Substance: FLUTICASONE PROPIONATE\SALMETEROL XINAFOATE

REACTIONS (1)
  - Upper respiratory tract infection [Recovering/Resolving]
